FAERS Safety Report 17703349 (Version 1)
Quarter: 2020Q2

REPORT INFORMATION
  Report Type: Spontaneous
  Country: CA (occurrence: CA)
  Receive Date: 20200423
  Receipt Date: 20200423
  Transmission Date: 20200714
  Serious: Yes (Other)
  Sender: FDA-Public Use
  Company Number: CA-TEVA-2020-CA-1226888

PATIENT
  Sex: Male

DRUGS (5)
  1. PREDNISONE. [Suspect]
     Active Substance: PREDNISONE
     Indication: COLITIS ULCERATIVE
     Dosage: 40 MG PO DAILY
     Route: 048
     Dates: start: 201906
  2. CORTIMENT DR/ER [Concomitant]
     Dates: start: 201908
  3. ASPIRIN. [Suspect]
     Active Substance: ASPIRIN
     Indication: COLITIS ULCERATIVE
     Route: 065
  4. TOFACTINIB [Concomitant]
     Dosage: 10 MILLIGRAM DAILY;
     Route: 048
  5. PFIZER INFLECTRA [Concomitant]
     Indication: COLITIS ULCERATIVE
     Route: 042
     Dates: start: 20200408

REACTIONS (7)
  - Frequent bowel movements [Not Recovered/Not Resolved]
  - Haematochezia [Unknown]
  - Diarrhoea [Recovering/Resolving]
  - Weight increased [Unknown]
  - Rectal haemorrhage [Unknown]
  - Drug ineffective [Unknown]
  - Diarrhoea [Not Recovered/Not Resolved]
